FAERS Safety Report 6139216-5 (Version None)
Quarter: 2009Q2

REPORT INFORMATION
  Report Type: 
  Country: None (occurrence: None)
  Receive Date: 20090401
  Receipt Date: 20090325
  Transmission Date: 20091009
  Serious: Yes (Hospitalization)
  Sender: FDA-Public Use
  Company Number: US-JNJFOC-20081003590

PATIENT
  Sex: Female
  Weight: 77.11 kg

DRUGS (7)
  1. DURAGESIC-100 [Suspect]
     Route: 062
  2. DURAGESIC-100 [Suspect]
     Route: 062
  3. DURAGESIC-100 [Suspect]
     Route: 062
  4. DURAGESIC-100 [Suspect]
     Indication: BACK PAIN
     Route: 062
  5. DURAGESIC-100 [Suspect]
     Indication: NECK PAIN
     Route: 062
  6. UNKNOWN MEDICATION [Concomitant]
     Indication: HYPERTENSION
     Route: 048
  7. NORCO [Concomitant]
     Indication: PAIN
     Route: 048

REACTIONS (6)
  - DRUG INEFFECTIVE [None]
  - INCORRECT DRUG ADMINISTRATION DURATION [None]
  - NECK PAIN [None]
  - OVARIAN CYST [None]
  - VAGINAL HAEMORRHAGE [None]
  - WRONG TECHNIQUE IN DRUG USAGE PROCESS [None]
